FAERS Safety Report 24153525 (Version 1)
Quarter: 2024Q3

REPORT INFORMATION
  Report Type: Spontaneous
  Country: GB (occurrence: GB)
  Receive Date: 20240730
  Receipt Date: 20240730
  Transmission Date: 20241017
  Serious: Yes (Other)
  Sender: MYLAN
  Company Number: None

PATIENT
  Age: 81 Year
  Sex: Male
  Weight: 84 kg

DRUGS (7)
  1. RAMIPRIL [Suspect]
     Active Substance: RAMIPRIL
     Indication: Product used for unknown indication
     Dosage: 2.5 MILLIGRAM, QD (PER DAY)
     Route: 065
     Dates: start: 20240628
  2. RAMIPRIL [Suspect]
     Active Substance: RAMIPRIL
     Dosage: 1.25 MILLIGRAM, QD (PER DAY)
     Route: 065
     Dates: start: 20240725
  3. ATORVASTATIN [Concomitant]
     Active Substance: ATORVASTATIN
     Dosage: UNK
     Route: 065
  4. DAPAGLIFLOZIN [Concomitant]
     Active Substance: DAPAGLIFLOZIN
     Dosage: UNK
     Route: 065
  5. FINASTERIDE [Concomitant]
     Active Substance: FINASTERIDE
     Dosage: UNK
     Route: 065
  6. METFORMIN [Concomitant]
     Active Substance: METFORMIN HYDROCHLORIDE
     Dosage: UNK
     Route: 065
  7. TAMSULOSIN [Concomitant]
     Active Substance: TAMSULOSIN
     Dosage: UNK
     Route: 065

REACTIONS (1)
  - Chromaturia [Not Recovered/Not Resolved]

NARRATIVE: CASE EVENT DATE: 20240719
